FAERS Safety Report 10509411 (Version 2)
Quarter: 2014Q4

REPORT INFORMATION
  Report Type: Report from Study
  Country: CO (occurrence: CO)
  Receive Date: 20141009
  Receipt Date: 20141126
  Transmission Date: 20150528
  Serious: Yes (Hospitalization)
  Sender: FDA-Public Use
  Company Number: CO-BIOMARINAP-CO-2014-104314

PATIENT
  Age: 7 Year
  Sex: Male

DRUGS (1)
  1. ALDURAZYME [Suspect]
     Active Substance: LARONIDASE
     Indication: MUCOPOLYSACCHARIDOSIS I
     Dosage: UNK
     Route: 042

REACTIONS (4)
  - Dyspnoea [Recovering/Resolving]
  - Pneumonia viral [Recovered/Resolved]
  - Rhinorrhoea [Recovering/Resolving]
  - Cough [Recovering/Resolving]

NARRATIVE: CASE EVENT DATE: 2014
